FAERS Safety Report 19690740 (Version 5)
Quarter: 2021Q3

REPORT INFORMATION
  Report Type: Spontaneous
  Country: CH (occurrence: CH)
  Receive Date: 20210812
  Receipt Date: 20210831
  Transmission Date: 20211014
  Serious: Yes (Hospitalization, Other)
  Sender: FDA-Public Use
  Company Number: CH-PFIZER INC-202100994702

PATIENT
  Age: 69 Year
  Sex: Female

DRUGS (30)
  1. TEMESTA (LORAZEPAM) [Interacting]
     Active Substance: LORAZEPAM
     Dosage: 0.5 MG, AS NEEDED (0.5 MILLIGRAM, 1/DAY)
     Route: 048
     Dates: start: 20210609, end: 20210629
  2. DIFLUCAN [Interacting]
     Active Substance: FLUCONAZOLE
     Dosage: 400 MG, 1X/DAY
     Route: 048
     Dates: start: 20210618, end: 20210623
  3. ZOLPIDEM [Interacting]
     Active Substance: ZOLPIDEM TARTRATE
     Dosage: 10 MG, 1X/DAY
     Route: 048
     Dates: end: 20210611
  4. BENERVA [Concomitant]
     Active Substance: THIAMINE HYDROCHLORIDE
     Dosage: UNK
     Route: 065
     Dates: start: 20210626, end: 20210630
  5. LAXOBERON [Concomitant]
     Active Substance: SODIUM PICOSULFATE
     Dosage: UNK
     Route: 065
     Dates: start: 20210618
  6. MOVICOL [Concomitant]
     Active Substance: POLYETHYLENE GLYCOL 3350\POTASSIUM CHLORIDE\SODIUM BICARBONATE\SODIUM CHLORIDE
     Dosage: UNK
     Route: 065
     Dates: start: 20210618
  7. FREKA?CLYSS [Concomitant]
     Dosage: UNK, AS NEEDED
     Route: 065
     Dates: start: 20210618
  8. CYMBALTA [Interacting]
     Active Substance: DULOXETINE HYDROCHLORIDE
     Dosage: 30 MG, 1X/DAY
     Route: 048
     Dates: start: 20210602, end: 20210614
  9. CYMBALTA [Interacting]
     Active Substance: DULOXETINE HYDROCHLORIDE
     Dosage: 60 MG, 1X/DAY
     Route: 048
     Dates: start: 20210614, end: 20210618
  10. ACIDUM FOLICUM [Concomitant]
     Active Substance: FOLIC ACID
     Dosage: UNK
     Route: 065
     Dates: start: 20210626
  11. PREGABALIN. [Concomitant]
     Active Substance: PREGABALIN
     Dosage: UNK
     Route: 065
     Dates: end: 20210627
  12. TEMESTA (LORAZEPAM) [Interacting]
     Active Substance: LORAZEPAM
     Dosage: 0.5 MG, 1X/DAY
     Route: 048
     Dates: start: 20210611, end: 20210623
  13. PREGABALIN. [Interacting]
     Active Substance: PREGABALIN
     Dosage: 50 MG EVERY 3 DAYS
     Route: 048
     Dates: start: 20210623, end: 20210627
  14. PARACETAMOL [Concomitant]
     Active Substance: ACETAMINOPHEN
     Dosage: UNK
     Route: 065
     Dates: start: 20210601
  15. NEXIUM [Concomitant]
     Active Substance: ESOMEPRAZOLE MAGNESIUM
     Dosage: UNK
     Route: 065
  16. CYMBALTA [Interacting]
     Active Substance: DULOXETINE HYDROCHLORIDE
     Dosage: 90 MG, 1X/DAY
     Route: 048
     Dates: start: 20210618, end: 20210626
  17. CLEXANE [Concomitant]
     Active Substance: ENOXAPARIN SODIUM
     Dosage: UNK
     Route: 065
     Dates: start: 20210626
  18. BETMIGA [Concomitant]
     Active Substance: MIRABEGRON
     Dosage: UNK
     Route: 065
     Dates: end: 20210626
  19. SIRDALUD [Interacting]
     Active Substance: TIZANIDINE
     Dosage: 2 MG, 4X/DAY
     Route: 048
     Dates: start: 20210604, end: 20210623
  20. PALEXIA [Interacting]
     Active Substance: TAPENTADOL HYDROCHLORIDE
     Dosage: 50 MILLIGRAM, AS NEEDED
     Route: 048
     Dates: start: 20210604, end: 20210628
  21. MYCOSTATINE [Concomitant]
     Active Substance: NYSTATIN
     Dosage: UNK
     Route: 065
     Dates: start: 20210618, end: 20210628
  22. TEMESTA (LORAZEPAM) [Suspect]
     Active Substance: LORAZEPAM
     Dosage: 0.5 MG EVERY 3 DAYS
     Route: 048
     Dates: start: 20210602, end: 20210609
  23. DALMADORM [Interacting]
     Active Substance: FLURAZEPAM HYDROCHLORIDE
     Dosage: 30 MG, 1X/DAY
     Route: 048
     Dates: start: 20210611, end: 20210624
  24. MORPHINE [Concomitant]
     Active Substance: MORPHINE
     Dosage: UNK UNK, AS NEEDED
     Route: 065
     Dates: start: 20210626
  25. PREGABALIN. [Interacting]
     Active Substance: PREGABALIN
     Dosage: 50 MG EVERY 3 DAYS
     Route: 048
     Dates: end: 20210623
  26. PREGABALIN. [Interacting]
     Active Substance: PREGABALIN
     Dosage: 50 MG, ALTERNATE DAY (50 MILLIGRAM, EVERY 2 DAYS
     Dates: start: 20210623, end: 20210627
  27. PALEXIA [Interacting]
     Active Substance: TAPENTADOL HYDROCHLORIDE
     Dosage: 50 MG EVERY 4 DAYS
     Route: 048
     Dates: start: 20210604, end: 20210618
  28. COVERSUM N [Concomitant]
     Active Substance: PERINDOPRIL
     Dosage: UNK
     Route: 065
  29. SPASMO?URGENIN NEO [Concomitant]
     Active Substance: TROSPIUM
     Dosage: UNK
     Route: 065
     Dates: end: 20210626
  30. TEMESTA (LORAZEPAM) [Interacting]
     Active Substance: LORAZEPAM
     Dosage: 0.5 MG, ALTERNATE DAY (0.5 MILLIGRAM, EVERY 2 DAYS)
     Route: 048
     Dates: start: 20210609, end: 20210611

REACTIONS (5)
  - Confusional state [Not Recovered/Not Resolved]
  - Confusional state [Not Recovered/Not Resolved]
  - Sedation [Not Recovered/Not Resolved]
  - Urinary retention [Unknown]
  - Drug interaction [Recovered/Resolved]

NARRATIVE: CASE EVENT DATE: 20210602
